FAERS Safety Report 6173584-3 (Version None)
Quarter: 2009Q2

REPORT INFORMATION
  Report Type: 
  Country: None (occurrence: None)
  Receive Date: 20090429
  Receipt Date: 20090429
  Transmission Date: 20091009
  Serious: No
  Sender: FDA-Public Use
  Company Number: None

PATIENT
  Age: 67 Year
  Sex: Male
  Weight: 73.4827 kg

DRUGS (2)
  1. TRIAMTERENE AND HYDROCHLOROTHIAZIDE [Suspect]
     Indication: OEDEMA PERIPHERAL
     Dosage: 1 CAPS ONCE/DAY
     Dates: start: 20090201
  2. TRIAMTERENE AND HYDROCHLOROTHIAZIDE [Suspect]
     Indication: OEDEMA PERIPHERAL
     Dosage: 1 CAPS ONCE/DAY
     Dates: start: 20090401

REACTIONS (5)
  - DIZZINESS [None]
  - DRY MOUTH [None]
  - DYSPNOEA [None]
  - HEART RATE IRREGULAR [None]
  - VOMITING [None]
